FAERS Safety Report 19459731 (Version 2)
Quarter: 2021Q3

REPORT INFORMATION
  Report Type: Spontaneous
  Country: US (occurrence: US)
  Receive Date: 20210624
  Receipt Date: 20210715
  Transmission Date: 20211014
  Serious: Yes (Other)
  Sender: FDA-Public Use
  Company Number: US-PFIZER INC-2021500294

PATIENT
  Age: 77 Year
  Sex: Male
  Weight: 112.08 kg

DRUGS (1)
  1. TESTOSTERONE CIPIONATE [Suspect]
     Active Substance: TESTOSTERONE
     Dosage: 200 MG/ML IN A 10 ML MULTI?DOSE VIAL; 1 ML PER DOSE)

REACTIONS (7)
  - Product quality issue [Unknown]
  - Injection site mass [Unknown]
  - Injection site pain [Not Recovered/Not Resolved]
  - Injection site discomfort [Unknown]
  - Haemorrhage [Unknown]
  - Poor quality product administered [Unknown]
  - Ulcer [Unknown]

NARRATIVE: CASE EVENT DATE: 202101
